FAERS Safety Report 18777825 (Version 1)
Quarter: 2021Q1

REPORT INFORMATION
  Report Type: Spontaneous
  Country: US (occurrence: US)
  Receive Date: 20210122
  Receipt Date: 20210122
  Transmission Date: 20210419
  Serious: No
  Sender: FDA-Public Use
  Company Number: 2020SGN03318

PATIENT
  Sex: Female

DRUGS (2)
  1. TUKYSA [Suspect]
     Active Substance: TUCATINIB
     Indication: BREAST CANCER FEMALE
     Dosage: 150 MG, UNK
  2. CAPECITABINE. [Concomitant]
     Active Substance: CAPECITABINE
     Indication: BREAST CANCER FEMALE

REACTIONS (9)
  - Feeling abnormal [Unknown]
  - Chest pain [Unknown]
  - Eye movement disorder [Unknown]
  - Somnolence [Unknown]
  - Diarrhoea [Recovering/Resolving]
  - Pain in extremity [Unknown]
  - Urticaria [Unknown]
  - Nausea [Unknown]
  - Hordeolum [Unknown]
